FAERS Safety Report 5163951-9 (Version None)
Quarter: 2006Q4

REPORT INFORMATION
  Report Type: 
  Country: None (occurrence: None)
  Receive Date: 20061204
  Receipt Date: 20060727
  Transmission Date: 20070319
  Serious: Yes (Other)
  Sender: FDA-Public Use
  Company Number: US-ELI_LILLY_AND_COMPANY-US200607005076

PATIENT
  Age: 47 Year
  Sex: Female

DRUGS (7)
  1. CYMBALTA [Suspect]
     Indication: ANXIETY
     Dosage: 60 MG, DAILY (1/D)
     Dates: start: 20060501
  2. AMBIEN [Concomitant]
     Dosage: 12.5 MG, UNK
  3. ATIVAN [Concomitant]
     Indication: ANXIETY
     Dosage: 2 MG, AS NEEDED
  4. COZAAR [Concomitant]
     Indication: HYPERTENSION
     Dosage: 100 MG, DAILY (1/D)
  5. LIPITOR [Concomitant]
  6. PROTONIX [Concomitant]
     Dosage: 40 MG, DAILY (1/D)
  7. OXYCODONE W/PARACETAMOL [Concomitant]

REACTIONS (4)
  - FATIGUE [None]
  - HEPATIC STEATOSIS [None]
  - HEPATOTOXICITY [None]
  - LIVER DISORDER [None]
